FAERS Safety Report 25054523 (Version 1)
Quarter: 2025Q1

REPORT INFORMATION
  Report Type: Report from Study
  Country: FR (occurrence: FR)
  Receive Date: 20250307
  Receipt Date: 20250307
  Transmission Date: 20250408
  Serious: No
  Sender: SANDOZ
  Company Number: FR-SANDOZ-SDZ2025FR014023

PATIENT
  Age: 12 Year
  Sex: Male

DRUGS (1)
  1. OMNITROPE [Suspect]
     Active Substance: SOMATROPIN
     Indication: Product used for unknown indication
     Route: 058
     Dates: start: 20250221

REACTIONS (2)
  - Injection site mass [Unknown]
  - Lack of injection site rotation [Unknown]
